FAERS Safety Report 7940079-3 (Version None)
Quarter: 2011Q4

REPORT INFORMATION
  Report Type: 
  Country: None (occurrence: None)
  Receive Date: 20111125
  Receipt Date: 20111116
  Transmission Date: 20120403
  Serious: Yes (Other)
  Sender: FDA-Public Use
  Company Number: PHHY2010CA08786

PATIENT
  Sex: Female

DRUGS (4)
  1. SANDOSTATIN LAR [Suspect]
     Indication: CARCINOID TUMOUR
     Dosage: 20 MG, QMO
     Route: 030
     Dates: start: 20060220
  2. SANDOSTATIN LAR [Suspect]
     Dosage: 20 MG EVERY 4 WEEKS
     Route: 030
     Dates: end: 20080827
  3. SANDOSTATIN LAR [Suspect]
     Dosage: 20 MG, QMO
     Route: 030
  4. SANDOSTATIN LAR [Suspect]
     Dosage: 20 MG EVERY 4 WEEKS
     Route: 030
     Dates: end: 20080827

REACTIONS (8)
  - GASTROENTERITIS [None]
  - INJECTION SITE MASS [None]
  - MUSCULOSKELETAL PAIN [None]
  - BLOOD PRESSURE INCREASED [None]
  - INFLUENZA [None]
  - ALOPECIA [None]
  - INJECTION SITE PAIN [None]
  - INJECTION SITE INDURATION [None]
